FAERS Safety Report 25886000 (Version 1)
Quarter: 2025Q4

REPORT INFORMATION
  Report Type: Spontaneous
  Country: US (occurrence: None)
  Receive Date: 20251006
  Receipt Date: 20251006
  Transmission Date: 20260118
  Serious: Yes (Hospitalization)
  Sender: FDA-CTU
  Company Number: None

PATIENT
  Age: 68 Year
  Sex: Male

DRUGS (10)
  1. MYCOPHENOLIC ACID [Suspect]
     Active Substance: MYCOPHENOLIC ACID
     Indication: Renal transplant
     Dosage: 720 MG BID ORAL ?
     Route: 048
     Dates: start: 20230906
  2. LOSARTAN 100MG TABLETSMAG-OXIDE 400MG TABLETS [Concomitant]
  3. VITAMIN D3 2,000IU TABLETS DOXAZOSIN 2MG TABLETS [Concomitant]
  4. MULTIVITAMIN ADULTS TABLETS CLONIDINE 0.1 MG TABLETS [Concomitant]
  5. ACETAMINOPHEN 500MG CAPLETS ALLOPURINOL 100MG TABLETS [Concomitant]
  6. AMLODIPINE BESYLATE 10MG TABLETS ASPIRIN 81MG CHEWABLE TABLETS [Concomitant]
  7. GABAPENTIN 100MG CAPSULES HUMALOG 100 U/ML KWIK PEN INJ 3ML [Concomitant]
  8. HYDRALAZINE 50MG TABLETS LANTUS SOLOSTAR PEN INJ 3ML [Concomitant]
  9. METOPROLOL ER SUCCINATE 100MC TABS MYCOPHENOLIC ACID 360MG DR TABLETS [Concomitant]
  10. PANTOPRAZOLE 40MG TABLETS ROSUVASTATIN 10MC TABLETS [Concomitant]

REACTIONS (1)
  - COVID-19 pneumonia [None]

NARRATIVE: CASE EVENT DATE: 20250901
